FAERS Safety Report 5865985-5 (Version None)
Quarter: 2008Q3

REPORT INFORMATION
  Report Type: 
  Country: None (occurrence: None)
  Receive Date: 20080829
  Receipt Date: 20080818
  Transmission Date: 20090109
  Serious: Yes (Life-Threatening, Hospitalization, Disabling, Other)
  Sender: FDA-Public Use
  Company Number: JP-PFIZER INC-2008048544

PATIENT
  Sex: Male
  Weight: 58 kg

DRUGS (2)
  1. VIAGRA [Suspect]
  2. ALL OTHER THERAPEUTIC PRODUCTS [Concomitant]

REACTIONS (6)
  - APALLIC SYNDROME [None]
  - CARDIAC ARREST [None]
  - CONVULSION [None]
  - HYPOTENSION [None]
  - HYPOXIC ENCEPHALOPATHY [None]
  - VENTRICULAR FIBRILLATION [None]
